FAERS Safety Report 5502451-0 (Version None)
Quarter: 2007Q4

REPORT INFORMATION
  Report Type: 
  Country: None (occurrence: None)
  Receive Date: 20071030
  Receipt Date: 20071018
  Transmission Date: 20080405
  Serious: Yes (Death, Hospitalization)
  Sender: FDA-Public Use
  Company Number: ES-PFIZER INC-2007080346

PATIENT
  Age: 42 Year
  Sex: Female
  Weight: 100 kg

DRUGS (9)
  1. LINEZOLID [Suspect]
     Indication: INFECTION PROPHYLAXIS
     Route: 042
     Dates: start: 20070919, end: 20070921
  2. RIFAMPICIN [Concomitant]
  3. CIPROFLOXACIN [Concomitant]
  4. GENTAMICIN [Concomitant]
  5. DOPAMINE HCL [Concomitant]
  6. VITAMIN K [Concomitant]
  7. NOREPINEPHRINE [Concomitant]
  8. FUROSEMIDE [Concomitant]
  9. CEFTAZIDIME [Concomitant]

REACTIONS (6)
  - HEPATIC FAILURE [None]
  - LACTIC ACIDOSIS [None]
  - MULTI-ORGAN FAILURE [None]
  - PARADOXICAL PRESSOR RESPONSE [None]
  - RHABDOMYOLYSIS [None]
  - THROMBOCYTOPENIA [None]
